APPROVED DRUG PRODUCT: CORTEF
Active Ingredient: HYDROCORTISONE CYPIONATE
Strength: EQ 10MG BASE/5ML
Dosage Form/Route: SUSPENSION;ORAL
Application: N009900 | Product #001
Applicant: PHARMACIA AND UPJOHN CO
Approved: Approved Prior to Jan 1, 1982 | RLD: No | RS: No | Type: DISCN